FAERS Safety Report 6747150-2 (Version None)
Quarter: 2010Q2

REPORT INFORMATION
  Report Type: 
  Country: None (occurrence: None)
  Receive Date: 20100528
  Receipt Date: 20100517
  Transmission Date: 20101027
  Serious: Yes (Hospitalization)
  Sender: FDA-Public Use
  Company Number: DE-PFIZER INC-2009235206

PATIENT
  Age: 65 Year
  Sex: Male
  Weight: 78 kg

DRUGS (6)
  1. PEGVISOMANT [Suspect]
     Indication: ACROMEGALY
     Dosage: 20 MG, 1X/DAY
     Dates: start: 20090326
  2. CONCOR [Concomitant]
     Indication: HYPERTENSION
     Dosage: 2.5 MG, UNK
  3. ASPIRIN [Concomitant]
     Dosage: 100 MG, UNK
  4. PLAVIX [Concomitant]
     Dosage: UNK
  5. SIMVASTATIN [Concomitant]
     Indication: LIPID METABOLISM DISORDER
     Dosage: 20 MG, UNK
  6. RAMIPRIL [Concomitant]
     Indication: HYPERTENSION
     Dosage: 20 MG, UNK

REACTIONS (1)
  - COLITIS [None]
